FAERS Safety Report 8391891 (Version 3)
Quarter: 2012Q4

REPORT INFORMATION
  Report Type: 
  Country: US (occurrence: US)
  Receive Date: 20120206
  Receipt Date: 20121018
  Transmission Date: 20130627
  Serious: Yes (Other)
  Sender: FDA-Public Use
  Company Number: US-ROCHE-1036586

PATIENT
  Age: 22 None
  Sex: Female
  Weight: 73.55 kg

DRUGS (3)
  1. ACCUTANE [Suspect]
     Indication: ACNE CYSTIC
     Route: 065
     Dates: start: 1990
  2. ACCUTANE [Suspect]
     Route: 065
     Dates: start: 1991
  3. ACCUTANE [Suspect]
     Route: 065
     Dates: start: 19940106, end: 19940530

REACTIONS (10)
  - Colitis ulcerative [Unknown]
  - Crohn^s disease [Unknown]
  - Inflammatory bowel disease [Unknown]
  - Depression [Unknown]
  - Injury [Unknown]
  - Pseudopolyposis [Unknown]
  - Irritable bowel syndrome [Unknown]
  - Rash [Unknown]
  - Lip dry [Unknown]
  - Dry skin [Unknown]
